FAERS Safety Report 22067866 (Version 1)
Quarter: 2023Q1

REPORT INFORMATION
  Report Type: Report from Study
  Country: AU (occurrence: AU)
  Receive Date: 20230307
  Receipt Date: 20230307
  Transmission Date: 20230418
  Serious: Yes (Other)
  Sender: FDA-Public Use
  Company Number: AU-JNJFOC-20230261727

PATIENT
  Sex: Female

DRUGS (1)
  1. STELARA [Suspect]
     Active Substance: USTEKINUMAB
     Indication: Inflammatory bowel disease
     Route: 058

REACTIONS (4)
  - Gestational diabetes [Unknown]
  - Premature labour [Unknown]
  - Pre-eclampsia [Unknown]
  - Exposure during pregnancy [Unknown]
